FAERS Safety Report 7210719-5 (Version None)
Quarter: 2011Q1

REPORT INFORMATION
  Report Type: 
  Country: None (occurrence: None)
  Receive Date: 20110105
  Receipt Date: 20101228
  Transmission Date: 20110831
  Serious: Yes (Other)
  Sender: FDA-Public Use
  Company Number: US-PFIZER INC-HQWYE754001SEP04

PATIENT
  Sex: Female
  Weight: 81.7 kg

DRUGS (5)
  1. ASPIRIN [Concomitant]
     Indication: CARDIAC DISORDER
     Dosage: UNK
  2. PREMPRO [Suspect]
     Indication: MENOPAUSAL SYMPTOMS
  3. LIPITOR [Concomitant]
     Indication: BLOOD CHOLESTEROL INCREASED
     Dosage: UNK
     Dates: start: 19970101
  4. PREMPRO [Suspect]
     Indication: HORMONE REPLACEMENT THERAPY
     Dosage: 0.625/2.5MG, UNK
     Route: 048
     Dates: start: 19970710, end: 20001117
  5. DITROPAN [Concomitant]
     Indication: INCONTINENCE
     Dosage: UNK
     Dates: start: 20000101, end: 20040101

REACTIONS (1)
  - BREAST CANCER FEMALE [None]
